FAERS Safety Report 24260246 (Version 1)
Quarter: 2024Q3

REPORT INFORMATION
  Report Type: Spontaneous
  Country: US (occurrence: None)
  Receive Date: 20240827
  Receipt Date: 20240827
  Transmission Date: 20241016
  Serious: No
  Sender: Public
  Company Number: None

PATIENT
  Sex: Female

DRUGS (1)
  1. SPRYCEL [Suspect]
     Active Substance: DASATINIB
     Indication: Chronic myeloid leukaemia
     Dates: end: 20240805

REACTIONS (7)
  - Loss of personal independence in daily activities [None]
  - Gait disturbance [None]
  - Dysstasia [None]
  - Renal failure [None]
  - Atrophy [None]
  - Vomiting [None]
  - Diarrhoea [None]
